FAERS Safety Report 9548488 (Version 2)
Quarter: 2013Q4

REPORT INFORMATION
  Report Type: Spontaneous
  Country: US (occurrence: US)
  Receive Date: 20130924
  Receipt Date: 20131101
  Transmission Date: 20140711
  Serious: Yes (Other)
  Sender: FDA-Public Use
  Company Number: US-PFIZER INC-2013273859

PATIENT
  Age: 65 Year
  Sex: Female

DRUGS (2)
  1. LYRICA [Suspect]
     Indication: MUSCULOSKELETAL PAIN
     Dosage: 25 MG, 1X/DAY
     Dates: start: 2008
  2. LYRICA [Suspect]
     Indication: NECK PAIN
     Dosage: 50 MG, 1X/DAY
     Dates: end: 2009

REACTIONS (5)
  - Off label use [Unknown]
  - Suicidal ideation [Recovering/Resolving]
  - Depression [Recovering/Resolving]
  - Malaise [Recovering/Resolving]
  - Insomnia [Recovering/Resolving]
